FAERS Safety Report 25657486 (Version 2)
Quarter: 2025Q3

REPORT INFORMATION
  Report Type: Report from Study
  Country: US (occurrence: US)
  Receive Date: 20250808
  Receipt Date: 20250912
  Transmission Date: 20251020
  Serious: Yes (Hospitalization, Other)
  Sender: ABBVIE
  Company Number: US-ABBVIE-6144380

PATIENT
  Age: 63 Year
  Sex: Female

DRUGS (2)
  1. SKYRIZI [Suspect]
     Active Substance: RISANKIZUMAB-RZAA
     Indication: Crohn^s disease
     Route: 058
     Dates: start: 20240202
  2. SKYRIZI [Suspect]
     Active Substance: RISANKIZUMAB-RZAA
     Route: 058
     Dates: start: 20241217, end: 20250211

REACTIONS (21)
  - Colitis [Recovering/Resolving]
  - Accident [Recovering/Resolving]
  - Cervical vertebral fracture [Recovering/Resolving]
  - Aphasia [Recovering/Resolving]
  - Paraesthesia [Unknown]
  - Hypersensitivity [Unknown]
  - Limb discomfort [Unknown]
  - Limb discomfort [Unknown]
  - Malnutrition [Recovering/Resolving]
  - Muscular weakness [Unknown]
  - Muscle spasms [Unknown]
  - Urticaria [Unknown]
  - Anxiety [Unknown]
  - Dyspnoea [Unknown]
  - Nerve injury [Unknown]
  - Insomnia [Unknown]
  - Swelling [Unknown]
  - Rash papular [Recovered/Resolved]
  - Vomiting [Unknown]
  - Fall [Unknown]
  - Spinal column injury [Recovering/Resolving]

NARRATIVE: CASE EVENT DATE: 20250101
